FAERS Safety Report 7790912-3 (Version None)
Quarter: 2011Q3

REPORT INFORMATION
  Report Type: 
  Country: None (occurrence: None)
  Receive Date: 20110930
  Receipt Date: 20110922
  Transmission Date: 20111222
  Serious: Yes (Other)
  Sender: FDA-Public Use
  Company Number: IN-SANOFI-AVENTIS-2011SA063110

PATIENT

DRUGS (5)
  1. ASPIRIN [Suspect]
     Route: 065
  2. METFORMIN HCL [Suspect]
     Route: 065
  3. PLAVIX [Suspect]
     Route: 048
  4. INSULIN [Suspect]
     Route: 065
  5. METOPROLOL TARTRATE [Suspect]
     Route: 065

REACTIONS (3)
  - DUODENAL ULCER [None]
  - GASTROINTESTINAL HAEMORRHAGE [None]
  - GASTRITIS [None]
